FAERS Safety Report 17259576 (Version 2)
Quarter: 2020Q2

REPORT INFORMATION
  Report Type: Spontaneous
  Country: US (occurrence: US)
  Receive Date: 20200110
  Receipt Date: 20200428
  Transmission Date: 20200713
  Serious: Yes (Other)
  Sender: FDA-Public Use
  Company Number: US-009507513-2001USA002261

PATIENT
  Sex: Male

DRUGS (1)
  1. PIFELTRO [Suspect]
     Active Substance: DORAVIRINE
     Indication: HIV INFECTION
     Dosage: 1 TABLET ONCE DAILY
     Route: 048
     Dates: start: 201809

REACTIONS (2)
  - Pathogen resistance [Unknown]
  - Viral load abnormal [Recovered/Resolved]

NARRATIVE: CASE EVENT DATE: 20191127
